FAERS Safety Report 17477627 (Version 1)
Quarter: 2020Q1

REPORT INFORMATION
  Report Type: Report from Study
  Country: TR (occurrence: TR)
  Receive Date: 20200228
  Receipt Date: 20200228
  Transmission Date: 20200409
  Serious: Yes (Other)
  Sender: FDA-Public Use
  Company Number: TR-TAKEDA-2020TUS012020

PATIENT
  Age: 62 Year
  Sex: Female
  Weight: 56 kg

DRUGS (1)
  1. BRIGATINIB [Suspect]
     Active Substance: BRIGATINIB
     Indication: NON-SMALL CELL LUNG CANCER METASTATIC
     Dosage: UNK
     Route: 065
     Dates: start: 20191205, end: 20200221

REACTIONS (1)
  - Non-small cell lung cancer [Not Recovered/Not Resolved]

NARRATIVE: CASE EVENT DATE: 20200222
